FAERS Safety Report 10144185 (Version 1)
Quarter: 2014Q2

REPORT INFORMATION
  Report Type: Spontaneous
  Country: US (occurrence: US)
  Receive Date: 20140430
  Receipt Date: 20140430
  Transmission Date: 20141212
  Serious: Yes (Hospitalization)
  Sender: FDA-Public Use
  Company Number: US-PFIZER INC-2014118256

PATIENT
  Sex: Male

DRUGS (1)
  1. LYRICA [Suspect]
     Indication: PAIN
     Dosage: 75 MG, 2X/DAY
     Route: 048

REACTIONS (2)
  - Respiratory disorder [Unknown]
  - Disease progression [Unknown]
